FAERS Safety Report 10056088 (Version 1)
Quarter: 2014Q2

REPORT INFORMATION
  Report Type: Not Available
  Country: GB (occurrence: GB)
  Receive Date: 20140403
  Receipt Date: 20140403
  Transmission Date: 20141212
  Serious: Yes (Other)
  Sender: FDA-Public Use
  Company Number: GB-ASTELLAS-2014EU003117

PATIENT
  Age: 36 Year
  Sex: Male
  Weight: 93 kg

DRUGS (25)
  1. PROTOPIC [Suspect]
     Dosage: UNK
     Route: 065
  2. BECLOMETASONE [Concomitant]
     Dosage: UNK
     Route: 065
     Dates: start: 20140218
  3. BECLOMETASONE [Concomitant]
     Dosage: UNK
     Route: 065
     Dates: start: 20140114, end: 20140211
  4. BECLOMETASONE [Concomitant]
     Dosage: UNK
     Route: 065
     Dates: start: 20131125, end: 20131223
  5. BETAMETHASONE VALERATE [Concomitant]
     Dosage: UNK
     Route: 065
     Dates: start: 20140218
  6. BETAMETHASONE VALERATE [Concomitant]
     Dosage: UNK
     Route: 065
     Dates: start: 20140108, end: 20140205
  7. BETAMETHASONE VALERATE [Concomitant]
     Dosage: UNK
     Route: 065
     Dates: start: 20131125, end: 20131223
  8. BETNOVATE [Concomitant]
     Dosage: UNK
     Route: 065
     Dates: start: 20131202, end: 20131230
  9. BETNOVATE [Concomitant]
     Dosage: UNK
     Route: 065
     Dates: start: 20140108, end: 20140205
  10. CETRIZINE [Concomitant]
     Dosage: UNK
     Route: 065
     Dates: start: 20131125
  11. DICLOFENAC SODIUM [Concomitant]
     Dosage: UNK
     Route: 065
     Dates: start: 20140306
  12. DICLOFENAC SODIUM [Concomitant]
     Dosage: UNK
     Route: 065
     Dates: start: 20140114, end: 20140211
  13. DICLOFENAC SODIUM [Concomitant]
     Dosage: UNK
     Route: 065
     Dates: start: 20131125, end: 20131223
  14. EUMOVATE [Concomitant]
     Dosage: UNK
     Route: 065
     Dates: start: 20140123
  15. FLUDROXYCORTIDE [Concomitant]
     Dosage: UNK
     Route: 065
     Dates: end: 20140313
  16. FLUDROXYCORTIDE [Concomitant]
     Dosage: UNK
     Route: 065
     Dates: start: 20140306, end: 20140308
  17. FLUDROXYCORTIDE [Concomitant]
     Dosage: UNK
     Route: 065
     Dates: start: 20140207, end: 20140208
  18. FLUDROXYCORTIDE [Concomitant]
     Dosage: UNK
     Route: 065
     Dates: start: 20140123, end: 20140124
  19. HYDROCORTISONE [Concomitant]
     Dosage: UNK
     Route: 065
     Dates: start: 20140123, end: 20140222
  20. MORPHINE SULFATE [Concomitant]
     Dosage: UNK
     Route: 065
     Dates: start: 20140106, end: 20140116
  21. OILATUM                            /01690401/ [Concomitant]
     Dosage: UNK
     Route: 065
     Dates: start: 20131209, end: 20131223
  22. OMEPRAZOLE [Concomitant]
     Dosage: UNK
     Route: 065
     Dates: start: 20140306
  23. POLYTAR                            /00785601/ [Concomitant]
     Dosage: UNK
     Route: 065
     Dates: start: 20140103, end: 20140131
  24. ZEROBASE                           /00103901/ [Concomitant]
     Dosage: UNK
     Route: 065
     Dates: start: 20140221, end: 20140303
  25. ZOMORPH [Concomitant]
     Dosage: UNK
     Route: 065
     Dates: start: 20131125

REACTIONS (2)
  - Pruritus [Recovered/Resolved]
  - Wheezing [Recovered/Resolved]
